FAERS Safety Report 9158675 (Version 1)
Quarter: 2013Q1

REPORT INFORMATION
  Report Type: Spontaneous
  Country: US (occurrence: US)
  Receive Date: 20130312
  Receipt Date: 20130312
  Transmission Date: 20140127
  Serious: No
  Sender: FDA-Public Use
  Company Number: US-PFIZER INC-2013048828

PATIENT
  Age: 52 Year
  Sex: Female
  Weight: 49.43 kg

DRUGS (4)
  1. ENBREL [Suspect]
     Indication: RHEUMATOID ARTHRITIS
     Dosage: 25 MG, 2 TIMES/WK
     Dates: start: 20080516, end: 2012
  2. METHOTREXATE SODIUM [Suspect]
     Dosage: UNK
  3. METHOTREXATE SODIUM [Suspect]
     Dosage: UNK
  4. CIMZIA [Suspect]
     Dosage: UNK

REACTIONS (6)
  - Arthralgia [Not Recovered/Not Resolved]
  - Alopecia [Recovered/Resolved]
  - Rash generalised [Recovered/Resolved]
  - Pain in jaw [Not Recovered/Not Resolved]
  - Musculoskeletal pain [Not Recovered/Not Resolved]
  - Neck pain [Not Recovered/Not Resolved]
